FAERS Safety Report 7718428-0 (Version None)
Quarter: 2011Q3

REPORT INFORMATION
  Report Type: 
  Country: None (occurrence: None)
  Receive Date: 20110830
  Receipt Date: 20110825
  Transmission Date: 20111222
  Serious: No
  Sender: FDA-Public Use
  Company Number: US-PFIZER INC-2011198061

PATIENT
  Sex: Male
  Weight: 57.143 kg

DRUGS (4)
  1. ACETYLSALICYLIC ACID [Concomitant]
     Indication: THROMBOSIS
     Dosage: LOW DOSE
  2. LIPITOR [Suspect]
     Indication: BLOOD CHOLESTEROL INCREASED
     Dosage: 20 MG, 1X/DAY
     Route: 048
     Dates: start: 20090601
  3. ACETYLSALICYLIC ACID [Concomitant]
     Indication: CORONARY ARTERY DISEASE
  4. AVODART [Concomitant]
     Indication: PROSTATOMEGALY
     Dosage: 0.5 MG, 1X/DAY
     Route: 048

REACTIONS (2)
  - WEIGHT DECREASED [None]
  - ALOPECIA [None]
